FAERS Safety Report 13021463 (Version 1)
Quarter: 2016Q4

REPORT INFORMATION
  Report Type: Spontaneous
  Country: IS (occurrence: IS)
  Receive Date: 20161213
  Receipt Date: 20161213
  Transmission Date: 20170207
  Serious: Yes (Hospitalization)
  Sender: FDA-Public Use
  Company Number: IS-009507513-1612ISL002102

PATIENT
  Age: 34 Year
  Sex: Female

DRUGS (1)
  1. NUVARING [Suspect]
     Active Substance: ETHINYL ESTRADIOL\ETONOGESTREL
     Indication: CONTRACEPTION
     Dosage: 0.120 MG / 0.015 MG / 24 H VAGINAL
     Route: 067
     Dates: end: 2005

REACTIONS (3)
  - Abortion spontaneous [Recovered/Resolved]
  - Abortion spontaneous [Recovered/Resolved]
  - Uterine dilation and curettage [Recovered/Resolved]

NARRATIVE: CASE EVENT DATE: 200512
